FAERS Safety Report 23848932 (Version 1)
Quarter: 2024Q2

REPORT INFORMATION
  Report Type: Spontaneous
  Country: US (occurrence: None)
  Receive Date: 20240510
  Receipt Date: 20240510
  Transmission Date: 20240716
  Serious: No
  Sender: FDA-Public Use
  Company Number: None

PATIENT

DRUGS (1)
  1. CAPECITABINE [Suspect]
     Active Substance: CAPECITABINE

REACTIONS (8)
  - Diarrhoea [None]
  - Vomiting [None]
  - Nausea [None]
  - Fatigue [None]
  - Blood urine present [None]
  - Constipation [None]
  - Dizziness [None]
  - Therapy cessation [None]
